FAERS Safety Report 7607607-9 (Version None)
Quarter: 2011Q3

REPORT INFORMATION
  Report Type: 
  Country: None (occurrence: None)
  Receive Date: 20110713
  Receipt Date: 20110202
  Transmission Date: 20111222
  Serious: Yes (Other)
  Sender: FDA-Public Use
  Company Number: PHHY2011PT47136

PATIENT
  Age: 71 Year
  Sex: Female

DRUGS (2)
  1. DESFERAL [Suspect]
     Dosage: UNK
     Dates: start: 20080401, end: 20080401
  2. DESFERAL [Suspect]
     Indication: BLOOD IRON INCREASED
     Dosage: 3000 MG
     Route: 042
     Dates: start: 20070401, end: 20080401

REACTIONS (2)
  - BREAST CANCER [None]
  - GASTROINTESTINAL DISORDER [None]
